FAERS Safety Report 8815389 (Version 2)
Quarter: 2012Q4

REPORT INFORMATION
  Report Type: 
  Country: IT (occurrence: IT)
  Receive Date: 20120928
  Receipt Date: 20121010
  Transmission Date: 20130627
  Serious: Yes (Hospitalization)
  Sender: FDA-Public Use
  Company Number: IT-B.I. PHARMACEUTICALS,INC./RIDGEFIELD-2012-EU-04649BY

PATIENT
  Age: 45 Year
  Sex: Female

DRUGS (8)
  1. PRITOR [Suspect]
     Indication: HYPERTENSION
     Dosage: 320 mg
     Route: 048
     Dates: start: 20080501, end: 20120912
  2. PRITOR [Suspect]
     Dosage: 160 mg
     Route: 048
     Dates: start: 20120913, end: 20120913
  3. LIBRADIN [Suspect]
     Indication: HYPERTENSION
     Dosage: 4 anz
     Route: 048
     Dates: start: 20090801, end: 20120912
  4. LIBRADIN [Suspect]
     Dosage: 2 anz
     Route: 048
     Dates: start: 20120913, end: 20120913
  5. LOBIVON [Suspect]
     Indication: HYPERTENSION
     Dosage: 20 mg
     Route: 048
     Dates: start: 20080501, end: 20120912
  6. LOBIVON [Suspect]
     Dosage: 10 mg
     Route: 048
     Dates: start: 20120913, end: 20120913
  7. LOBIVON [Suspect]
     Dosage: 10 mg
     Route: 048
     Dates: start: 201209
  8. CARDIOASPIRIN [Concomitant]

REACTIONS (5)
  - Syncope [Not Recovered/Not Resolved]
  - Fall [Not Recovered/Not Resolved]
  - Syncope [None]
  - Medication error [None]
  - Overdose [None]
